FAERS Safety Report 12540562 (Version 1)
Quarter: 2016Q3

REPORT INFORMATION
  Report Type: Spontaneous
  Country: DE (occurrence: DE)
  Receive Date: 20160708
  Receipt Date: 20160708
  Transmission Date: 20161109
  Serious: Yes (Congenital Anomaly, Other)
  Sender: FDA-Public Use
  Company Number: DE-SUN PHARMACEUTICAL INDUSTRIES LTD-2016RR-119937

PATIENT
  Age: 1 Day
  Sex: Male
  Weight: 3.15 kg

DRUGS (4)
  1. TWYNSTA [Suspect]
     Active Substance: AMLODIPINE BESYLATE\TELMISARTAN
     Indication: HYPERTENSION
     Dosage: 40 MG, QD, 0.-9.1. GESTATIONAL WEEK
     Route: 064
     Dates: start: 20141210, end: 20150212
  2. FOLIO [Concomitant]
     Active Substance: FOLIC ACID
     Indication: PROPHYLAXIS OF NEURAL TUBE DEFECT
     Dosage: 0.4 MG, QD, 0.-39.2. GESTATIONAL WEEK
     Route: 064
     Dates: start: 20141210, end: 20150911
  3. METHYLDOPA. [Suspect]
     Active Substance: METHYLDOPA
     Indication: HYPERTENSION
     Dosage: 250 MG, TID, 9.2.-39.2. GESTATIONAL WEEK
     Route: 064
     Dates: start: 20150213, end: 20150911
  4. CITALOPRAM [Suspect]
     Active Substance: CITALOPRAM HYDROBROMIDE
     Indication: DEPRESSION
     Dosage: DOSAGE UNKNOWN,0.-39.2. GESTATIONAL WEEK
     Route: 064
     Dates: start: 20141210, end: 20150911

REACTIONS (3)
  - Hypospadias [Not Recovered/Not Resolved]
  - Foot deformity [Recovered/Resolved]
  - Kinematic imbalances due to suboccipital strain [Recovering/Resolving]

NARRATIVE: CASE EVENT DATE: 20150911
